FAERS Safety Report 4551405-X (Version None)
Quarter: 2005Q1

REPORT INFORMATION
  Report Type: 
  Country: None (occurrence: None)
  Receive Date: 20050113
  Receipt Date: 20041206
  Transmission Date: 20050727
  Serious: Yes (Hospitalization, Other)
  Sender: FDA-Public Use
  Company Number: US-BRISTOL-MYERS SQUIBB COMPANY-12785812

PATIENT
  Age: 15 Year
  Sex: Male
  Weight: 64 kg

DRUGS (4)
  1. GLUCOPHAGE [Suspect]
     Route: 048
     Dates: start: 20041201, end: 20041201
  2. TYLENOL [Suspect]
  3. LISINOPRIL [Suspect]
  4. IBUPROFEN [Suspect]

REACTIONS (3)
  - INTENTIONAL MISUSE [None]
  - LACTIC ACIDOSIS [None]
  - SUICIDE ATTEMPT [None]
